FAERS Safety Report 15967418 (Version 1)
Quarter: 2019Q1

REPORT INFORMATION
  Report Type: Spontaneous
  Country: US (occurrence: US)
  Receive Date: 20190124
  Receipt Date: 20190124
  Transmission Date: 20190418
  Serious: Yes (Death)
  Sender: FDA-Public Use
  Company Number: None

PATIENT
  Age: 58 Year
  Sex: Male

DRUGS (5)
  1. MIRTAZAPINE. [Suspect]
     Active Substance: MIRTAZAPINE
     Dosage: ?          QUANTITY:15 MG MILLIGRAM(S);?
  2. LOSARTAN POTASSIUM. [Concomitant]
     Active Substance: LOSARTAN POTASSIUM
  3. MIRTAZAPINE. [Suspect]
     Active Substance: MIRTAZAPINE
     Indication: INSOMNIA
     Dosage: ?          QUANTITY:30 MG MILLIGRAM(S);?
     Route: 048
     Dates: start: 20180811, end: 20181127
  4. ASPIRIN. [Concomitant]
     Active Substance: ASPIRIN
  5. MIRTAZAPINE. [Suspect]
     Active Substance: MIRTAZAPINE
     Indication: WEIGHT DECREASED
     Dosage: ?          QUANTITY:30 MG MILLIGRAM(S);?
     Route: 048
     Dates: start: 20180811, end: 20181127

REACTIONS (6)
  - Insomnia [None]
  - Weight decreased [None]
  - Intentional self-injury [None]
  - Persistent depressive disorder [None]
  - Completed suicide [None]
  - Emotional distress [None]
